FAERS Safety Report 6497467-4 (Version None)
Quarter: 2009Q4

REPORT INFORMATION
  Report Type: 
  Country: None (occurrence: None)
  Receive Date: 20091215
  Receipt Date: 20091207
  Transmission Date: 20100525
  Serious: Yes (Disabling, Other)
  Sender: FDA-Public Use
  Company Number: JP-ASTRAZENECA-2009SE23088

PATIENT
  Age: 63 Year
  Sex: Female
  Weight: 49 kg

DRUGS (12)
  1. IRESSA [Suspect]
     Indication: LUNG ADENOCARCINOMA
     Route: 048
     Dates: start: 20081230, end: 20090201
  2. IRESSA [Suspect]
     Route: 048
     Dates: start: 20090217, end: 20090301
  3. LOXONIN [Concomitant]
     Indication: PAIN
     Route: 048
     Dates: start: 20081230
  4. MARZULENE-S [Concomitant]
     Indication: GASTRITIS
     Route: 048
     Dates: start: 20081230
  5. MAGNESIUM OXIDE [Concomitant]
     Indication: CONSTIPATION
     Route: 048
     Dates: start: 20081230
  6. PRIMPERAN TAB [Concomitant]
     Indication: CONSTIPATION
     Route: 048
     Dates: start: 20081230
  7. LENDORMIN D [Concomitant]
     Indication: INSOMNIA
     Route: 048
     Dates: start: 20081230
  8. MS CONTIN [Concomitant]
     Indication: PAIN
     Route: 048
     Dates: start: 20081230
  9. ALLOID G [Concomitant]
     Indication: GASTRITIS
     Route: 048
     Dates: start: 20081230, end: 20090121
  10. URSO 250 [Concomitant]
     Indication: LIVER DISORDER
     Route: 048
     Dates: start: 20090114, end: 20090121
  11. BLOPRESS [Concomitant]
     Indication: HYPERTENSION
     Route: 048
     Dates: start: 20090117
  12. TAKEPRON [Concomitant]
     Indication: GASTRITIS
     Route: 048
     Dates: start: 20090204

REACTIONS (3)
  - ALANINE AMINOTRANSFERASE INCREASED [None]
  - ASPARTATE AMINOTRANSFERASE INCREASED [None]
  - LUNG DISORDER [None]
